FAERS Safety Report 16087681 (Version 1)
Quarter: 2019Q1

REPORT INFORMATION
  Report Type: Spontaneous
  Country: US (occurrence: US)
  Receive Date: 20190319
  Receipt Date: 20190319
  Transmission Date: 20190418
  Serious: No
  Sender: FDA-Public Use
  Company Number: US-MTPC-MTDA2019-0039148

PATIENT

DRUGS (2)
  1. RADICAVA [Suspect]
     Active Substance: EDARAVONE
     Indication: AMYOTROPHIC LATERAL SCLEROSIS
     Dosage: 60 MILLIGRAM, DAILY FOR 14 CONSECUTIVE DAYS FOLLOWED BY A 2 WEEK DRUG FREE PERIOD (CYCLE 1)
     Route: 042
  2. RADICAVA [Suspect]
     Active Substance: EDARAVONE
     Dosage: 60 MILLIGRAM OVER 60 MINUTES, DAILY FOR 10 DAYS WITHIN A 14-DAY PERIOD FOLLOWED BY A 2 WEEK DRUG FRE
     Route: 042

REACTIONS (1)
  - Product dose omission [Unknown]

NARRATIVE: CASE EVENT DATE: 20190301
